FAERS Safety Report 9885378 (Version 1)
Quarter: 2014Q1

REPORT INFORMATION
  Report Type: Spontaneous
  Country: US (occurrence: US)
  Receive Date: 20140210
  Receipt Date: 20140210
  Transmission Date: 20141002
  Serious: No
  Sender: FDA-Public Use
  Company Number: US-PFIZER INC-2014036912

PATIENT
  Age: 43 Year
  Sex: Female
  Weight: 58.96 kg

DRUGS (4)
  1. LYRICA [Suspect]
     Indication: HEADACHE
     Dosage: 100 MG, 3X/DAY
     Dates: start: 2011
  2. LYRICA [Suspect]
     Dosage: 50 MG, 3X/DAY
     Dates: start: 201305
  3. LYRICA [Suspect]
     Dosage: 100 MG, 3X/DAY
  4. TRAMADOL [Concomitant]
     Indication: NECK PAIN
     Dosage: 100 MG, EVERY 6 HOURS

REACTIONS (2)
  - Drug dispensing error [Unknown]
  - Nasopharyngitis [Not Recovered/Not Resolved]
